FAERS Safety Report 6967875-3 (Version None)
Quarter: 2010Q3

REPORT INFORMATION
  Report Type: 
  Country: None (occurrence: None)
  Receive Date: 20100907
  Receipt Date: 20100506
  Transmission Date: 20110219
  Serious: No
  Sender: FDA-Public Use
  Company Number: A0858544A

PATIENT
  Sex: Female

DRUGS (6)
  1. REQUIP [Suspect]
     Indication: PARKINSON'S DISEASE
     Dosage: 8MG THREE TIMES PER DAY
     Route: 048
  2. WATER PILL [Concomitant]
  3. POTASSIUM [Concomitant]
  4. MUSCLE RELAXER [Concomitant]
  5. LEVODOPA [Concomitant]
  6. CARBIDOPA [Concomitant]

REACTIONS (3)
  - FEELING COLD [None]
  - SPEECH DISORDER [None]
  - TREMOR [None]
